FAERS Safety Report 14846082 (Version 2)
Quarter: 2018Q2

REPORT INFORMATION
  Report Type: Spontaneous
  Country: US (occurrence: US)
  Receive Date: 20180504
  Receipt Date: 20180526
  Transmission Date: 20180711
  Serious: No
  Sender: FDA-Public Use
  Company Number: US-JNJFOC-20180422669

PATIENT
  Sex: Female

DRUGS (5)
  1. XARELTO [Suspect]
     Active Substance: RIVAROXABAN
     Indication: ATRIAL FIBRILLATION
     Dosage: NDC 5045857814
     Route: 048
     Dates: start: 201803
  2. FUROSEMIDE. [Concomitant]
     Active Substance: FUROSEMIDE
     Indication: OEDEMA
     Route: 065
  3. XARELTO [Suspect]
     Active Substance: RIVAROXABAN
     Indication: CEREBROVASCULAR ACCIDENT PROPHYLAXIS
     Dosage: NDC 5045857814
     Route: 048
     Dates: start: 201803
  4. DIGOXIN. [Concomitant]
     Active Substance: DIGOXIN
     Indication: ELECTROLYTE IMBALANCE
     Route: 065
  5. SPIRONOLACTONE. [Concomitant]
     Active Substance: SPIRONOLACTONE
     Indication: OEDEMA
     Route: 065

REACTIONS (6)
  - Product label issue [Unknown]
  - Malaise [Not Recovered/Not Resolved]
  - Body height decreased [Unknown]
  - Wound haemorrhage [Not Recovered/Not Resolved]
  - Expired product administered [Unknown]
  - Decreased appetite [Not Recovered/Not Resolved]

NARRATIVE: CASE EVENT DATE: 2018
